FAERS Safety Report 10575821 (Version 1)
Quarter: 2014Q4

REPORT INFORMATION
  Report Type: Spontaneous
  Country: US (occurrence: US)
  Receive Date: 20141111
  Receipt Date: 20141111
  Transmission Date: 20150529
  Serious: Yes (Other)
  Sender: FDA-Public Use
  Company Number: US-RB-070152-14

PATIENT
  Sex: Female

DRUGS (1)
  1. DELSYM [Suspect]
     Active Substance: DEXTROMETHORPHAN
     Indication: PRODUCT USED FOR UNKNOWN INDICATION
     Dosage: CONSUMER LAST USED THE PRODUCT ON 31-OCT-2014
     Route: 065
     Dates: start: 20141031

REACTIONS (2)
  - Accidental overdose [Not Recovered/Not Resolved]
  - Tunnel vision [Not Recovered/Not Resolved]

NARRATIVE: CASE EVENT DATE: 20141031
